FAERS Safety Report 5775342-8 (Version None)
Quarter: 2008Q2

REPORT INFORMATION
  Report Type: 
  Country: None (occurrence: None)
  Receive Date: 20080617
  Receipt Date: 20080612
  Transmission Date: 20081010
  Serious: Yes (Death)
  Sender: FDA-Public Use
  Company Number: JP-JNJFOC-20080603397

PATIENT

DRUGS (1)
  1. ITRIZOLE [Suspect]
     Indication: SYSTEMIC MYCOSIS
     Route: 041

REACTIONS (1)
  - PULMONARY OEDEMA [None]
